FAERS Safety Report 24427140 (Version 3)
Quarter: 2024Q4

REPORT INFORMATION
  Report Type: Report from Study
  Country: ES (occurrence: ES)
  Receive Date: 20241011
  Receipt Date: 20241023
  Transmission Date: 20250114
  Serious: Yes (Hospitalization)
  Sender: EISAI
  Company Number: ES-Eisai-EC-2024-167381

PATIENT
  Age: 69 Year
  Sex: Male
  Weight: 76.6 kg

DRUGS (11)
  1. LENVATINIB [Suspect]
     Active Substance: LENVATINIB
     Indication: Small cell lung cancer extensive stage
     Route: 048
     Dates: start: 20240514, end: 20240530
  2. LENVATINIB [Suspect]
     Active Substance: LENVATINIB
     Route: 048
     Dates: start: 20240708, end: 20240807
  3. LENVATINIB [Suspect]
     Active Substance: LENVATINIB
     Route: 048
     Dates: start: 20240912, end: 20240930
  4. CARBOPLATIN [Suspect]
     Active Substance: CARBOPLATIN
     Indication: Small cell lung cancer extensive stage
     Dosage: FREQUENCY UNKNOWN
     Route: 042
     Dates: start: 20240514, end: 20240514
  5. CARBOPLATIN [Suspect]
     Active Substance: CARBOPLATIN
     Dosage: FREQUENCY UNKNOWN
     Route: 042
     Dates: start: 20240731, end: 20240731
  6. ETOPOSIDE [Suspect]
     Active Substance: ETOPOSIDE
     Indication: Small cell lung cancer extensive stage
     Dosage: FREQUENCY UNKNOWN
     Route: 042
     Dates: start: 20240514, end: 20240516
  7. ETOPOSIDE [Suspect]
     Active Substance: ETOPOSIDE
     Dosage: FREQUENCY UNKNOWN
     Route: 042
     Dates: start: 20240802, end: 20240802
  8. PEMBROLIZUMAB [Suspect]
     Active Substance: PEMBROLIZUMAB
     Indication: Small cell lung cancer extensive stage
     Dosage: FREQUENCY UNKNOWN
     Route: 042
     Dates: start: 20240514, end: 20240514
  9. PEMBROLIZUMAB [Suspect]
     Active Substance: PEMBROLIZUMAB
     Dosage: FREQUENCY UNKNOWN
     Route: 042
     Dates: start: 20240731, end: 20240731
  10. PEMBROLIZUMAB [Suspect]
     Active Substance: PEMBROLIZUMAB
     Dosage: FREQUENCY UNKNOWN
     Route: 042
     Dates: start: 20240912, end: 20240912
  11. PIPERACILLIN AND TAZOBACTAM [Concomitant]
     Active Substance: PIPERACILLIN SODIUM\TAZOBACTAM SODIUM

REACTIONS (4)
  - Febrile neutropenia [Recovered/Resolved]
  - Urinary tract infection [Recovered/Resolved]
  - Anaemia [Recovered/Resolved]
  - Peripheral arterial occlusive disease [Recovered/Resolved]

NARRATIVE: CASE EVENT DATE: 20240530
